FAERS Safety Report 7170501-4 (Version None)
Quarter: 2010Q4

REPORT INFORMATION
  Report Type: 
  Country: None (occurrence: None)
  Receive Date: 20101217
  Receipt Date: 20101214
  Transmission Date: 20110411
  Serious: Yes (Life-Threatening)
  Sender: FDA-Public Use
  Company Number: RU-NOVOPROD-318225

PATIENT
  Age: 63 Year
  Sex: Female
  Weight: 95 kg

DRUGS (10)
  1. LEVEMIR [Suspect]
     Indication: TYPE 2 DIABETES MELLITUS
     Dosage: 22 IU, QD
     Route: 058
     Dates: start: 20100527
  2. NOVORAPID [Suspect]
     Indication: TYPE 2 DIABETES MELLITUS
     Dosage: 20 IU, QD
     Route: 058
     Dates: start: 20100322, end: 20101101
  3. NOVORAPID [Suspect]
     Dosage: 22 IU, QD
     Route: 058
     Dates: start: 20101101
  4. METFORMIN [Concomitant]
     Indication: DIABETES MELLITUS
     Dosage: N/A
     Route: 048
     Dates: end: 20101101
  5. CARVEDILOL [Concomitant]
  6. AMLODIPINE [Concomitant]
  7. BISOPROLOL [Concomitant]
  8. SIMVASTATIN [Concomitant]
  9. CO RENITEC [Concomitant]
  10. EPROSARTAN [Concomitant]

REACTIONS (1)
  - PANCREATIC CARCINOMA METASTATIC [None]
